FAERS Safety Report 9986431 (Version 1)
Quarter: 2014Q1

REPORT INFORMATION
  Report Type: Spontaneous
  Country: US (occurrence: US)
  Receive Date: 20140307
  Receipt Date: 20140307
  Transmission Date: 20141002
  Serious: No
  Sender: FDA-Public Use
  Company Number: US-ASTRAZENECA-2014SE09757

PATIENT
  Age: 38 Year
  Sex: Male
  Weight: 86.2 kg

DRUGS (12)
  1. NEXIUM [Suspect]
     Indication: GASTROOESOPHAGEAL REFLUX DISEASE
     Dosage: UNKNOWN DAILY
     Route: 048
     Dates: start: 20140106, end: 20140120
  2. PRILOSEC [Suspect]
     Indication: GASTROOESOPHAGEAL REFLUX DISEASE
     Route: 048
     Dates: start: 2012, end: 2012
  3. PRILOSEC [Suspect]
     Indication: GASTROOESOPHAGEAL REFLUX DISEASE
     Route: 048
     Dates: start: 2012, end: 2012
  4. PRILOSEC [Suspect]
     Indication: GASTROOESOPHAGEAL REFLUX DISEASE
     Dosage: OMEPRAZOLE, 20 MG, TWO TIMES A DAY
     Route: 048
     Dates: start: 20140121
  5. PRILOSEC OTC [Suspect]
     Indication: GASTROOESOPHAGEAL REFLUX DISEASE
     Dosage: UNKNOWN UNK
     Route: 048
  6. ZYRTEC [Concomitant]
     Indication: SEASONAL ALLERGY
     Dosage: UNKNOWN DAILY
     Route: 048
     Dates: start: 2011
  7. ZYRTEC [Concomitant]
     Indication: ALLERGY TO ANIMAL
     Dosage: UNKNOWN DAILY
     Route: 048
     Dates: start: 2011
  8. CENTRUM MULTIVITAMIN [Concomitant]
     Indication: VITAMIN SUPPLEMENTATION
     Dosage: 1 TAB/CAP DAILY
     Route: 048
  9. ZANTAC [Concomitant]
  10. TUMS [Concomitant]
  11. RANITIDINE [Concomitant]
  12. SANIDINE [Concomitant]

REACTIONS (4)
  - Gastrooesophageal reflux disease [Recovered/Resolved]
  - Gastritis [Not Recovered/Not Resolved]
  - Drug dose omission [Not Recovered/Not Resolved]
  - Drug effect decreased [Not Recovered/Not Resolved]
